FAERS Safety Report 19095447 (Version 1)
Quarter: 2021Q2

REPORT INFORMATION
  Report Type: Spontaneous
  Country: CA (occurrence: CA)
  Receive Date: 20210406
  Receipt Date: 20210406
  Transmission Date: 20210717
  Serious: Yes (Hospitalization)
  Sender: FDA-Public Use
  Company Number: CA-BAUSCH-BL-2021-011421

PATIENT
  Age: 83 Year
  Sex: Male

DRUGS (1)
  1. DEXAMETHASONE. [Suspect]
     Active Substance: DEXAMETHASONE
     Indication: BRAIN OEDEMA
     Route: 048

REACTIONS (1)
  - Diabetic ketoacidosis [Unknown]
